FAERS Safety Report 7682198-5 (Version None)
Quarter: 2011Q3

REPORT INFORMATION
  Report Type: 
  Country: None (occurrence: None)
  Receive Date: 20110815
  Receipt Date: 20110812
  Transmission Date: 20111222
  Serious: No
  Sender: FDA-Public Use
  Company Number: US-PFIZER INC-2011186354

PATIENT
  Sex: Female
  Weight: 136 kg

DRUGS (5)
  1. ABILIFY [Concomitant]
     Dosage: UNK
  2. ZYPREXA [Concomitant]
     Dosage: 20 MG, UNK
  3. GEODON [Suspect]
     Dosage: 60 MG, UNK
     Dates: start: 20110101, end: 20110101
  4. GEODON [Suspect]
     Dosage: 80 MG, UNK
     Dates: start: 20110101, end: 20110101
  5. GEODON [Suspect]
     Dosage: 60 MG, UNK
     Dates: start: 20110101, end: 20110101

REACTIONS (3)
  - FATIGUE [None]
  - SOMNOLENCE [None]
  - SEDATION [None]
